FAERS Safety Report 15353079 (Version 1)
Quarter: 2018Q3

REPORT INFORMATION
  Report Type: Spontaneous
  Country: BR (occurrence: BR)
  Receive Date: 20180905
  Receipt Date: 20180905
  Transmission Date: 20181010
  Serious: Yes (Death)
  Sender: FDA-Public Use
  Company Number: BR-JNJFOC-20180903675

PATIENT
  Age: 51 Year
  Sex: Male
  Weight: 140 kg

DRUGS (2)
  1. TRAMAL [Suspect]
     Active Substance: TRAMADOL
     Indication: RIB FRACTURE
     Route: 065
     Dates: start: 20180819
  2. TRAMAL [Suspect]
     Active Substance: TRAMADOL
     Indication: MUSCULOSKELETAL CHEST PAIN
     Route: 065
     Dates: start: 20180819

REACTIONS (1)
  - Splenic rupture [Fatal]

NARRATIVE: CASE EVENT DATE: 20180819
